FAERS Safety Report 22129957 (Version 6)
Quarter: 2023Q4

REPORT INFORMATION
  Report Type: Report from Study
  Country: FR (occurrence: FR)
  Receive Date: 20230323
  Receipt Date: 20231101
  Transmission Date: 20240109
  Serious: Yes (Other)
  Sender: FDA-Public Use
  Company Number: FR-JNJFOC-20220713218

PATIENT
  Age: 52 Year
  Sex: Male
  Weight: 80 kg

DRUGS (22)
  1. TADALAFIL [Suspect]
     Active Substance: TADALAFIL
     Indication: Pulmonary arterial hypertension
     Dosage: UNK UNK, OTHER (600 IN MORNING AND 600 IN EVENING)
     Route: 065
  2. SELEXIPAG [Suspect]
     Active Substance: SELEXIPAG
     Indication: Heritable pulmonary arterial hypertension
     Dosage: 200 UG, BID
     Route: 048
     Dates: start: 20220627
  3. SELEXIPAG [Suspect]
     Active Substance: SELEXIPAG
     Dosage: 400 UG, BID
     Route: 048
     Dates: start: 20220704
  4. SELEXIPAG [Suspect]
     Active Substance: SELEXIPAG
     Dosage: 600 UG, BID
     Route: 048
     Dates: start: 20220718
  5. SELEXIPAG [Suspect]
     Active Substance: SELEXIPAG
     Dosage: 800 UG, BID
     Route: 048
     Dates: start: 20220725
  6. SELEXIPAG [Suspect]
     Active Substance: SELEXIPAG
     Dosage: 600 UG, EACH MORNING
     Route: 048
     Dates: start: 20220805
  7. SELEXIPAG [Suspect]
     Active Substance: SELEXIPAG
     Dosage: 800 UG, EACH EVENING
     Route: 048
     Dates: start: 20220805
  8. SELEXIPAG [Suspect]
     Active Substance: SELEXIPAG
     Dosage: 600 UG, EACH MORNING
     Route: 048
     Dates: start: 20220806
  9. SELEXIPAG [Suspect]
     Active Substance: SELEXIPAG
     Dosage: 600 UG, BID
     Route: 048
     Dates: start: 20220806
  10. SELEXIPAG [Suspect]
     Active Substance: SELEXIPAG
     Dosage: 400 UG, BID
     Route: 048
     Dates: start: 20220812
  11. SELEXIPAG [Suspect]
     Active Substance: SELEXIPAG
     Dosage: 600 UG, BID
     Route: 048
     Dates: start: 20220916
  12. SELEXIPAG [Suspect]
     Active Substance: SELEXIPAG
     Dosage: 800 UG, BID
     Route: 048
     Dates: start: 20221007
  13. SELEXIPAG [Suspect]
     Active Substance: SELEXIPAG
     Dosage: 1000 UG, BID
     Route: 048
     Dates: start: 20221202
  14. SELEXIPAG [Suspect]
     Active Substance: SELEXIPAG
     Dosage: 800 UG, BID
     Route: 048
     Dates: start: 20221203
  15. SELEXIPAG [Suspect]
     Active Substance: SELEXIPAG
     Dosage: 1000 UG, BID
     Route: 048
     Dates: start: 20221209
  16. SELEXIPAG [Suspect]
     Active Substance: SELEXIPAG
     Dosage: 1200 UG, BID
     Route: 048
     Dates: start: 20221217
  17. SELEXIPAG [Suspect]
     Active Substance: SELEXIPAG
     Dosage: 1000 UG, BID
     Route: 048
     Dates: start: 20221218
  18. SELEXIPAG [Suspect]
     Active Substance: SELEXIPAG
     Dosage: 1200 UG, BID
     Route: 048
     Dates: start: 20230217
  19. SELEXIPAG [Suspect]
     Active Substance: SELEXIPAG
     Dosage: 1000 UG, BID
     Route: 048
     Dates: start: 20230218
  20. AMOXICILLIN\CLAVULANATE POTASSIUM [Suspect]
     Active Substance: AMOXICILLIN\CLAVULANATE POTASSIUM
     Indication: Cough
     Dosage: UNK UNK, UNKNOWN
     Route: 065
     Dates: start: 20221223
  21. COLCHICINE [Suspect]
     Active Substance: COLCHICINE
     Indication: Gout
     Dosage: UNK UNK, UNKNOWN
     Route: 065
  22. BOSENTAN [Concomitant]
     Active Substance: BOSENTAN
     Indication: Pulmonary arterial hypertension

REACTIONS (24)
  - Basal cell carcinoma [Recovering/Resolving]
  - Headache [Recovered/Resolved]
  - Nasopharyngitis [Recovering/Resolving]
  - Diarrhoea [Not Recovered/Not Resolved]
  - Pyrexia [Not Recovered/Not Resolved]
  - Chills [Recovered/Resolved]
  - Bronchitis [Not Recovered/Not Resolved]
  - Gout [Not Recovered/Not Resolved]
  - Eye disorder [Not Recovered/Not Resolved]
  - Pharyngitis [Recovering/Resolving]
  - Arthralgia [Not Recovered/Not Resolved]
  - Pain in jaw [Not Recovered/Not Resolved]
  - Somnolence [Recovered/Resolved]
  - Memory impairment [Unknown]
  - Myalgia [Recovered/Resolved]
  - Abdominal pain [Not Recovered/Not Resolved]
  - Nausea [Not Recovered/Not Resolved]
  - Fatigue [Not Recovered/Not Resolved]
  - Dyspnoea exertional [Not Recovered/Not Resolved]
  - Vision blurred [Not Recovered/Not Resolved]
  - Inappropriate schedule of product administration [Unknown]
  - Off label use [Unknown]
  - Product dose omission issue [Unknown]
  - Medication error [Unknown]

NARRATIVE: CASE EVENT DATE: 20220703
